FAERS Safety Report 7608660-9 (Version None)
Quarter: 2011Q3

REPORT INFORMATION
  Report Type: 
  Country: None (occurrence: None)
  Receive Date: 20110714
  Receipt Date: 20110703
  Transmission Date: 20111222
  Serious: No
  Sender: FDA-Public Use
  Company Number: US-B.I. PHARMACEUTICALS,INC./RIDGEFIELD-2011-BP-17061BP

PATIENT
  Age: 83 Year
  Sex: Female

DRUGS (6)
  1. AMLODIPINE [Concomitant]
     Indication: BLOOD PRESSURE
     Dosage: 10 MG
     Route: 048
     Dates: start: 20090101
  2. TYLENOL-500 [Concomitant]
     Indication: MUSCULOSKELETAL PAIN
     Dosage: 2600 MG
     Route: 048
  3. OMEPRAZOLE [Concomitant]
     Indication: ANTACID THERAPY
     Dosage: 20 MG
     Route: 048
     Dates: start: 20060101
  4. RAMIPRIL [Concomitant]
     Indication: BLOOD PRESSURE
     Dosage: 10 MG
     Route: 048
     Dates: start: 20060101
  5. BISOPROLOL [Concomitant]
     Indication: BLOOD PRESSURE
     Dosage: 5 MG
     Route: 048
     Dates: start: 20060101
  6. PRADAXA [Suspect]
     Indication: ATRIAL FIBRILLATION
     Dosage: 300 MG
     Route: 048
     Dates: start: 20101201

REACTIONS (3)
  - MUSCULOSKELETAL PAIN [None]
  - ARTHRALGIA [None]
  - MELAENA [None]
